FAERS Safety Report 14483146 (Version 1)
Quarter: 2018Q1

REPORT INFORMATION
  Report Type: Other
  Country: PT (occurrence: PT)
  Receive Date: 20180204
  Receipt Date: 20180204
  Transmission Date: 20180509
  Serious: Yes (Hospitalization, Other)
  Sender: FDA-Public Use
  Company Number: PT-GLENMARK PHARMACEUTICALS-2018GMK031383

PATIENT

DRUGS (11)
  1. PIMOZIDE. [Suspect]
     Active Substance: PIMOZIDE
     Indication: ANXIETY
     Dosage: UNK
     Route: 065
  2. FLUVOXAMINE [Suspect]
     Active Substance: FLUVOXAMINE
     Indication: ANXIETY
     Dosage: UNK
     Route: 065
  3. CLONAZEPAM. [Suspect]
     Active Substance: CLONAZEPAM
     Indication: INTENTIONAL SELF-INJURY
  4. CLONAZEPAM. [Suspect]
     Active Substance: CLONAZEPAM
     Indication: TIC
  5. FLUVOXAMINE [Suspect]
     Active Substance: FLUVOXAMINE
     Indication: INTENTIONAL SELF-INJURY
  6. FLUVOXAMINE [Suspect]
     Active Substance: FLUVOXAMINE
     Indication: TIC
  7. LAMOTRIGINE. [Suspect]
     Active Substance: LAMOTRIGINE
     Indication: TIC
  8. CLONAZEPAM. [Suspect]
     Active Substance: CLONAZEPAM
     Indication: ANXIETY
     Dosage: UNK
     Route: 065
  9. PIMOZIDE. [Suspect]
     Active Substance: PIMOZIDE
     Indication: INTENTIONAL SELF-INJURY
  10. PIMOZIDE. [Suspect]
     Active Substance: PIMOZIDE
     Indication: TIC
  11. LAMOTRIGINE. [Suspect]
     Active Substance: LAMOTRIGINE
     Indication: INTENTIONAL SELF-INJURY
     Dosage: UNK
     Route: 065

REACTIONS (3)
  - Off label use [Unknown]
  - Neuroleptic malignant syndrome [Unknown]
  - Product use in unapproved indication [Unknown]
